FAERS Safety Report 20109647 (Version 2)
Quarter: 2021Q4

REPORT INFORMATION
  Report Type: Report from Study
  Country: CN (occurrence: CN)
  Receive Date: 20211124
  Receipt Date: 20211202
  Transmission Date: 20220303
  Serious: Yes (Hospitalization)
  Sender: FDA-Public Use
  Company Number: CN-GILEAD-2021-0557817

PATIENT
  Sex: Male
  Weight: 71 kg

DRUGS (6)
  1. SACITUZUMAB GOVITECAN [Suspect]
     Active Substance: SACITUZUMAB GOVITECAN
     Indication: Transitional cell carcinoma
     Dosage: 10 MG/KG,
     Route: 042
     Dates: start: 20211110, end: 20211110
  2. TROPISETRON [Concomitant]
     Active Substance: TROPISETRON
     Dosage: UNK
     Dates: start: 20211110, end: 20211110
  3. FAMOTIDINE [Concomitant]
     Active Substance: FAMOTIDINE
     Dosage: UNK
     Dates: start: 20211110, end: 20211110
  4. DEXAMETHASONE [Concomitant]
     Active Substance: DEXAMETHASONE
  5. DIPHENHYDRAMINE HYDROCHLORIDE [Concomitant]
     Active Substance: DIPHENHYDRAMINE HYDROCHLORIDE
     Dosage: UNK
     Dates: start: 20211110, end: 20211110
  6. OXYTOCIN [Concomitant]
     Active Substance: OXYTOCIN
     Indication: Pain
     Dosage: UNK
     Dates: start: 20211026, end: 20211111

REACTIONS (1)
  - Granulocytopenia [Unknown]

NARRATIVE: CASE EVENT DATE: 20211119
